FAERS Safety Report 5115338-2 (Version None)
Quarter: 2006Q3

REPORT INFORMATION
  Report Type: 
  Country: None (occurrence: None)
  Receive Date: 20060922
  Receipt Date: 20060914
  Transmission Date: 20061208
  Serious: Yes (Life-Threatening)
  Sender: FDA-Public Use
  Company Number: JP-2006-013158

PATIENT
  Age: 73 Year
  Sex: Female

DRUGS (6)
  1. SOTALOL HCL [Suspect]
     Indication: VENTRICULAR TACHYCARDIA
     Dosage: 40 MG, 2X/DAY, ORAL
     Route: 048
     Dates: start: 20011211, end: 20011215
  2. LASIX [Concomitant]
  3. ALDACTONE [Concomitant]
  4. MUCOSTA (REBAMIPIDE) [Concomitant]
  5. PREDONINE [Concomitant]
  6. FAMOTIDINE [Concomitant]

REACTIONS (7)
  - ALANINE AMINOTRANSFERASE INCREASED [None]
  - ASPARTATE AMINOTRANSFERASE INCREASED [None]
  - BLOOD POTASSIUM INCREASED [None]
  - DEHYDRATION [None]
  - HEPATIC FUNCTION ABNORMAL [None]
  - HYPOTENSION [None]
  - RENAL FAILURE ACUTE [None]
